FAERS Safety Report 7132234-X (Version None)
Quarter: 2010Q4

REPORT INFORMATION
  Report Type: 
  Country: None (occurrence: None)
  Receive Date: 20101130
  Receipt Date: 20101130
  Transmission Date: 20110411
  Serious: No
  Sender: FDA-Public Use
  Company Number: None

PATIENT
  Age: 29 Year
  Sex: Female
  Weight: 104.3273 kg

DRUGS (1)
  1. PROPOXYPHENE HCL AND ACETAMINOPHEN [Suspect]
     Indication: PAIN
     Dates: start: 20101109, end: 20101115

REACTIONS (3)
  - DIZZINESS [None]
  - NAUSEA [None]
  - PHOTOSENSITIVITY REACTION [None]
